FAERS Safety Report 23647093 (Version 1)
Quarter: 2024Q1

REPORT INFORMATION
  Report Type: Spontaneous
  Country: CA (occurrence: None)
  Receive Date: 20240319
  Receipt Date: 20240319
  Transmission Date: 20240410
  Serious: Yes (Hospitalization)
  Sender: FDA-Public Use
  Company Number: CA-PFIZER INC-202300296386

PATIENT
  Age: 71 Year
  Sex: Female
  Weight: 68.934 kg

DRUGS (10)
  1. METHOTREXATE [Suspect]
     Active Substance: METHOTREXATE
     Indication: Rheumatoid arthritis
     Dates: end: 202304
  2. METHOTREXATE [Suspect]
     Active Substance: METHOTREXATE
     Dosage: 1 DF, 2.5 MG EVERY SATURDAY (8 TABLETS A WEEK)
  3. AMLODIPINE [Concomitant]
     Active Substance: AMLODIPINE BESYLATE
     Dosage: PM (POST MERIDIEM)
  4. FOLIC ACID [Concomitant]
     Active Substance: FOLIC ACID
  5. INFLUENZA VIRUS VACCINE [Concomitant]
     Active Substance: INFLUENZA VIRUS VACCINE
     Indication: Influenza immunisation
     Dates: start: 202311, end: 202311
  6. HYDROCHLOROTHIAZIDE [Concomitant]
     Active Substance: HYDROCHLOROTHIAZIDE
  7. PERINDOPRIL ERBUMINE [Concomitant]
     Active Substance: PERINDOPRIL ERBUMINE
     Dosage: AM (ANTE MERIDIEM)
  8. PREDNISONE [Concomitant]
     Active Substance: PREDNISONE
  9. RUXIENCE [Concomitant]
     Active Substance: RITUXIMAB-PVVR
     Indication: Rheumatoid arthritis
     Dosage: DAY 1 AND DAY 15
     Dates: start: 20230925, end: 20231011
  10. RUXIENCE [Concomitant]
     Active Substance: RITUXIMAB-PVVR
     Dosage: DAY 1 AND DAY 15
     Dates: start: 20231011

REACTIONS (3)
  - Pneumonia [Recovered/Resolved]
  - Drug hypersensitivity [Unknown]
  - Palpitations [Unknown]

NARRATIVE: CASE EVENT DATE: 20230301
